FAERS Safety Report 7047941-7 (Version None)
Quarter: 2010Q4

REPORT INFORMATION
  Report Type: 
  Country: None (occurrence: None)
  Receive Date: 20101015
  Receipt Date: 20101006
  Transmission Date: 20110411
  Serious: Yes (Other)
  Sender: FDA-Public Use
  Company Number: US-PERRIGO-10US013713

PATIENT
  Sex: Female
  Weight: 11.791 kg

DRUGS (1)
  1. CHILDREN'S IBUPROFEN [Suspect]
     Indication: PYREXIA
     Dosage: 5 ML, BID
     Route: 048
     Dates: start: 20101005, end: 20101005

REACTIONS (3)
  - HALLUCINATION, VISUAL [None]
  - HYPERSENSITIVITY [None]
  - SUPERFICIAL INJURY OF EYE [None]
